FAERS Safety Report 7128931-2 (Version None)
Quarter: 2010Q4

REPORT INFORMATION
  Report Type: 
  Country: None (occurrence: None)
  Receive Date: 20101130
  Receipt Date: 20101124
  Transmission Date: 20110411
  Serious: Yes (Hospitalization)
  Sender: FDA-Public Use
  Company Number: B0683760A

PATIENT
  Age: 60 Year
  Sex: Female

DRUGS (4)
  1. AZANTAC [Suspect]
     Indication: PREMEDICATION
     Dosage: 50MG SEE DOSAGE TEXT
     Route: 042
     Dates: start: 20101018, end: 20101018
  2. METHYLPREDNISOLONE [Suspect]
     Indication: PREMEDICATION
     Dosage: 120MG SEE DOSAGE TEXT
     Route: 042
     Dates: start: 20101018, end: 20101018
  3. KYTRIL [Suspect]
     Indication: PREMEDICATION
     Dosage: 30MG SEE DOSAGE TEXT
     Route: 042
     Dates: start: 20101018, end: 20101018
  4. POLARAMINE [Suspect]
     Indication: PREMEDICATION
     Dosage: 2MG SINGLE DOSE
     Route: 048
     Dates: start: 20101018, end: 20101018

REACTIONS (6)
  - ANAPHYLACTIC SHOCK [None]
  - CONVULSION [None]
  - ERYTHEMA [None]
  - LOSS OF CONSCIOUSNESS [None]
  - MALAISE [None]
  - NAUSEA [None]
